FAERS Safety Report 4442788-X (Version None)
Quarter: 2004Q3

REPORT INFORMATION
  Report Type: 
  Country: None (occurrence: None)
  Receive Date: 20040903
  Receipt Date: 20040610
  Transmission Date: 20050211
  Serious: Yes (Other)
  Sender: FDA-Public Use
  Company Number: 2004UW12053

PATIENT
  Age: 58 Year
  Sex: Male
  Weight: 122.4712 kg

DRUGS (8)
  1. CRESTOR [Suspect]
     Indication: BLOOD CHOLESTEROL INCREASED
     Dosage: 10 MG PO
     Route: 048
     Dates: start: 20040501
  2. RELAFEN [Concomitant]
  3. AMITRIPTYLINE HCL [Concomitant]
  4. MIRAPEX [Concomitant]
  5. CLONAPIN [Concomitant]
  6. ASPIRIN [Concomitant]
  7. UNSPECIFIED ANTIBIOTIC [Concomitant]
  8. UNSPECIFIED GENERAL ANESTHESIA [Concomitant]

REACTIONS (3)
  - HICCUPS [None]
  - MYALGIA [None]
  - PAIN IN EXTREMITY [None]
